FAERS Safety Report 21949330 (Version 1)
Quarter: 2023Q1

REPORT INFORMATION
  Report Type: Spontaneous
  Country: US (occurrence: None)
  Receive Date: 20230202
  Receipt Date: 20230202
  Transmission Date: 20230417
  Serious: Yes (Other)
  Sender: FDA-Public Use
  Company Number: None

PATIENT
  Age: 75 Year
  Sex: Female

DRUGS (1)
  1. CAPECITABINE [Suspect]
     Active Substance: CAPECITABINE
     Indication: Neoplasm malignant
     Dosage: OTHER FREQUENCY : BID FOR 14 D;?
     Route: 048
     Dates: end: 20230201

REACTIONS (7)
  - Abdominal pain [None]
  - Drug intolerance [None]
  - Decreased appetite [None]
  - Fatigue [None]
  - Mobility decreased [None]
  - Intestinal obstruction [None]
  - Gastrointestinal disorder [None]
